FAERS Safety Report 16403420 (Version 1)
Quarter: 2019Q2

REPORT INFORMATION
  Report Type: Spontaneous
  Country: US (occurrence: US)
  Receive Date: 20190607
  Receipt Date: 20190607
  Transmission Date: 20190711
  Serious: Yes (Other)
  Sender: FDA-Public Use
  Company Number: US-HIKMA PHARMACEUTICALS USA INC.-US-H14001-19-03725

PATIENT
  Age: 31 Year
  Sex: Female

DRUGS (4)
  1. BUPIVACAINE. [Suspect]
     Active Substance: BUPIVACAINE
     Indication: ANALGESIC THERAPY
     Route: 037
  2. FENTANYL. [Suspect]
     Active Substance: FENTANYL
     Dosage: 2 MICROG/ML AT 12 ML/HOUR
     Route: 008
  3. BUPIVACAINE. [Suspect]
     Active Substance: BUPIVACAINE
     Route: 008
  4. FENTANYL. [Suspect]
     Active Substance: FENTANYL
     Indication: ANALGESIC THERAPY
     Route: 037

REACTIONS (2)
  - HELLP syndrome [Recovering/Resolving]
  - Maternal exposure during pregnancy [Recovered/Resolved]
